FAERS Safety Report 4859840-7 (Version None)
Quarter: 2005Q4

REPORT INFORMATION
  Report Type: 
  Country: None (occurrence: None)
  Receive Date: 20051215
  Receipt Date: 20051202
  Transmission Date: 20060501
  Serious: Yes (Death, Hospitalization)
  Sender: FDA-Public Use
  Company Number: 2005P1000624

PATIENT
  Age: 62 Year
  Sex: Male

DRUGS (8)
  1. RETEPLASE (RETEPLASE) [Suspect]
     Indication: MYOCARDIAL INFARCTION
     Dosage: 10 UNITS; X1; IM
     Route: 030
     Dates: start: 20030822, end: 20030822
  2. HEPARIN SODIUM [Suspect]
  3. IRBESARTAN [Concomitant]
  4. BUDESONIDE [Concomitant]
  5. ATENOLOL [Concomitant]
  6. METOCLOPRAMIDE [Concomitant]
  7. METOPROLOL [Concomitant]
  8. ASPIRIN [Suspect]

REACTIONS (1)
  - HAEMORRHAGE [None]
